FAERS Safety Report 22069673 (Version 1)
Quarter: 2023Q1

REPORT INFORMATION
  Report Type: Spontaneous
  Country: CN (occurrence: CN)
  Receive Date: 20230307
  Receipt Date: 20230307
  Transmission Date: 20230418
  Serious: Yes (Other)
  Sender: FDA-Public Use
  Company Number: CN-PFIZER INC-PV202300042400

PATIENT
  Age: 69 Year
  Sex: Male
  Weight: 80 kg

DRUGS (6)
  1. SOLU-MEDROL [Suspect]
     Active Substance: METHYLPREDNISOLONE SODIUM SUCCINATE
     Indication: Chronic inflammatory demyelinating polyradiculoneuropathy
     Dosage: 500 MG, 1X/DAY
     Route: 041
     Dates: start: 20230215, end: 20230217
  2. SOLU-MEDROL [Suspect]
     Active Substance: METHYLPREDNISOLONE SODIUM SUCCINATE
     Dosage: 250 UG, 1X/DAY
     Route: 041
     Dates: start: 20230218, end: 20230220
  3. SOLU-MEDROL [Suspect]
     Active Substance: METHYLPREDNISOLONE SODIUM SUCCINATE
     Indication: Chronic inflammatory demyelinating polyradiculoneuropathy
     Dosage: 120 MG, 1X/DAY
     Route: 041
     Dates: start: 20230221, end: 20230223
  4. SHU AN LING [Concomitant]
     Indication: Vascular headache
     Dosage: 0.2 G, 1X/DAY
     Route: 041
     Dates: start: 20230214, end: 20230223
  5. SODIUM ESCINATE [Concomitant]
     Active Substance: SODIUM ESCINATE
     Indication: Therapeutic procedure
     Dosage: 10 MG, 1X/DAY
     Route: 041
     Dates: start: 20230214, end: 20230223
  6. PANTOPRAZOLE SODIUM [Concomitant]
     Active Substance: PANTOPRAZOLE SODIUM
     Indication: Therapeutic procedure
     Dosage: 40 MG, 1X/DAY
     Route: 041
     Dates: start: 20230215, end: 20230223

REACTIONS (1)
  - Hepatic function abnormal [Recovering/Resolving]

NARRATIVE: CASE EVENT DATE: 20230222
